FAERS Safety Report 8160017-0 (Version None)
Quarter: 2012Q1

REPORT INFORMATION
  Report Type: 
  Country: None (occurrence: None)
  Receive Date: 20120223
  Receipt Date: 20120130
  Transmission Date: 20120608
  Serious: Yes (Life-Threatening)
  Sender: FDA-Public Use
  Company Number: AU-GLAXOSMITHKLINE-B0778533A

PATIENT
  Sex: Female

DRUGS (1)
  1. FLUTICASONE PROPIONATE/SALMETEROL [Suspect]
     Indication: EMPHYSEMA
     Dosage: 2PUFF TWICE PER DAY
     Route: 055
     Dates: start: 20080101

REACTIONS (6)
  - CHEST DISCOMFORT [None]
  - PRODUCT QUALITY ISSUE [None]
  - ILL-DEFINED DISORDER [None]
  - DYSPNOEA [None]
  - DRUG INEFFECTIVE [None]
  - DEVICE INEFFECTIVE [None]
